FAERS Safety Report 8805738 (Version 5)
Quarter: 2014Q1

REPORT INFORMATION
  Report Type: Report from Study
  Country: JP (occurrence: JP)
  Receive Date: 20120924
  Receipt Date: 20140121
  Transmission Date: 20141002
  Serious: Yes (Hospitalization, Other)
  Sender: FDA-Public Use
  Company Number: JP-AMGEN-JPNCT2012043383

PATIENT
  Age: 95 Year
  Sex: Female
  Weight: 39 kg

DRUGS (12)
  1. DARBEPOETIN ALFA [Suspect]
     Indication: NEPHROGENIC ANAEMIA
     Dosage: 30 MUG, Q2WK
     Route: 058
     Dates: start: 20111102
  2. AVAPRO [Concomitant]
     Dosage: UNK
     Route: 048
  3. LASIX [Concomitant]
     Indication: RENAL FAILURE CHRONIC
     Dosage: UNK
     Route: 048
  4. LUPRAC [Concomitant]
     Indication: RENAL FAILURE CHRONIC
     Dosage: UNK
     Route: 048
  5. BAYASPIRIN [Concomitant]
     Dosage: UNK
     Route: 048
  6. MUCOSTA [Concomitant]
     Dosage: UNK
     Route: 048
  7. GRAMALIL [Concomitant]
     Dosage: UNK
     Route: 048
  8. SOLDEM 3A [Concomitant]
     Dosage: UNK
     Route: 041
  9. ZYLORIC [Concomitant]
     Dosage: UNCERTAINTY
     Route: 048
  10. OMEPRAL [Concomitant]
     Dosage: UNK
     Route: 048
  11. PREMINENT [Concomitant]
     Dosage: UNK
     Route: 048
  12. OLMETEC [Concomitant]
     Dosage: UNK
     Route: 048

REACTIONS (8)
  - Blood creatinine increased [Not Recovered/Not Resolved]
  - Pneumonia [Recovered/Resolved]
  - Decreased appetite [Recovered/Resolved]
  - Diarrhoea [Recovering/Resolving]
  - Conjunctivitis [Recovered/Resolved]
  - Constipation [Recovered/Resolved]
  - Skin erosion [Recovered/Resolved]
  - Bronchitis [Recovering/Resolving]
